FAERS Safety Report 6315317-3 (Version None)
Quarter: 2009Q3

REPORT INFORMATION
  Report Type: 
  Country: None (occurrence: None)
  Receive Date: 20090819
  Receipt Date: 20090813
  Transmission Date: 20100115
  Serious: Yes (Other)
  Sender: FDA-Public Use
  Company Number: BR-AVENTIS-200918824GDDC

PATIENT
  Sex: Female
  Weight: 71.5 kg

DRUGS (9)
  1. LANTUS [Suspect]
     Route: 058
     Dates: start: 20030101
  2. OPTIPEN (INSULIN PUMP) [Suspect]
     Dates: start: 20030101
  3. AMOXICILLIN [Suspect]
     Route: 048
  4. CLAVULANATE POTASSIUM [Suspect]
     Route: 048
  5. HUMALOG [Concomitant]
     Dosage: DOSE: 2 IU IF GLYCEMIA } 180 AND UNKNOWN DOSE IF } 300
     Route: 058
  6. ENALAPRIL MALEATE [Concomitant]
     Indication: BLOOD PRESSURE ABNORMAL
     Dosage: DOSE: 2 TABLETS IN MORNING + 1 TABLET AT NIGHT
     Route: 048
  7. SIMVASTATIN [Concomitant]
     Route: 048
  8. SYNTHROID [Concomitant]
     Indication: THYROID DISORDER
     Route: 048
  9. RIVOTRIL [Concomitant]
     Dosage: DOSE QUANTITY: 1
     Route: 048

REACTIONS (8)
  - ABDOMINAL PAIN [None]
  - BALANCE DISORDER [None]
  - DIARRHOEA [None]
  - HYPERGLYCAEMIA [None]
  - HYPOGLYCAEMIA [None]
  - OPTIC NEUROPATHY [None]
  - URINARY TRACT INFECTION [None]
  - VISUAL ACUITY REDUCED [None]
